FAERS Safety Report 12446645 (Version 1)
Quarter: 2016Q2

REPORT INFORMATION
  Report Type: Spontaneous
  Country: US (occurrence: None)
  Receive Date: 20160607
  Receipt Date: 20160607
  Transmission Date: 20160815
  Serious: No
  Sender: FDA-Public Use
  Company Number: None

PATIENT
  Age: 65 Year
  Sex: Female
  Weight: 82.1 kg

DRUGS (14)
  1. LEVOXYL [Concomitant]
     Active Substance: LEVOTHYROXINE SODIUM
  2. CRESTOR [Concomitant]
     Active Substance: ROSUVASTATIN CALCIUM
  3. INDOCIN [Concomitant]
     Active Substance: INDOMETHACIN\INDOMETHACIN SODIUM
  4. GABAPENTIN. [Concomitant]
     Active Substance: GABAPENTIN
  5. CITALOPRAM [Concomitant]
     Active Substance: CITALOPRAM HYDROBROMIDE
  6. AMLODIPINE [Concomitant]
     Active Substance: AMLODIPINE BESYLATE
  7. MELATONIN [Concomitant]
     Active Substance: MELATONIN
  8. ALPRAZOLAM. [Concomitant]
     Active Substance: ALPRAZOLAM
  9. PLAQUENIL [Concomitant]
     Active Substance: HYDROXYCHLOROQUINE SULFATE
  10. BACLOFEN. [Concomitant]
     Active Substance: BACLOFEN
  11. VITAMIN D [Concomitant]
     Active Substance: CHOLECALCIFEROL
  12. OXYCONTIN [Concomitant]
     Active Substance: OXYCODONE HYDROCHLORIDE
  13. METHYLPREDNISOLONE 4MG, 4 MG SANDOZ [Suspect]
     Active Substance: METHYLPREDNISOLONE
     Indication: MIXED CONNECTIVE TISSUE DISEASE
     Route: 048
     Dates: start: 20160503, end: 20160606
  14. VITAMIN B12 [Concomitant]
     Active Substance: CYANOCOBALAMIN

REACTIONS (2)
  - Hyperhidrosis [None]
  - Fatigue [None]

NARRATIVE: CASE EVENT DATE: 20160503
